FAERS Safety Report 7420237-7 (Version None)
Quarter: 2011Q2

REPORT INFORMATION
  Report Type: 
  Country: None (occurrence: None)
  Receive Date: 20110418
  Receipt Date: 20110404
  Transmission Date: 20111010
  Serious: Yes (Hospitalization, Other)
  Sender: FDA-Public Use
  Company Number: US-TYCO HEALTHCARE/MALLINCKRODT-T201002161

PATIENT
  Sex: Female
  Weight: 60.771 kg

DRUGS (22)
  1. CATAPRES                           /00171101/ [Concomitant]
     Dosage: 0.2 MG Q 2 HRS; X 4 DOSES
     Route: 048
  2. LABETALOL [Concomitant]
     Dosage: 10 UNK, UNK
     Route: 042
     Dates: start: 20030110
  3. NITROGLYCERIN [Concomitant]
     Indication: BLOOD PRESSURE
     Dosage: UNK
     Route: 042
     Dates: start: 20030110
  4. TRANDATE [Concomitant]
     Dosage: 200 MG, Q 6 HRS
     Dates: start: 20030110
  5. ZOFRAN [Concomitant]
     Dosage: 4 MG, Q 4 HRS, PRN
     Route: 040
     Dates: start: 20030110
  6. GADOLINIUM [Suspect]
     Indication: ANGIOGRAM
  7. ACCUPRIL [Concomitant]
     Dosage: 40 MG, QD
     Route: 048
  8. NORVASC [Concomitant]
     Dosage: 10 MG, QD
     Route: 048
     Dates: start: 20030110
  9. CATAPRES                           /00171101/ [Concomitant]
     Dosage: 0.2 MG Q 6 HRS
     Route: 048
     Dates: start: 20030110
  10. SODIUM CHLORIDE [Concomitant]
     Dosage: KVO RATE
     Route: 042
     Dates: start: 20030110
  11. GADOLINIUM [Suspect]
     Indication: NUCLEAR MAGNETIC RESONANCE IMAGING
     Dosage: UNK
  12. LABETALOL [Concomitant]
     Indication: BLOOD PRESSURE INCREASED
     Dosage: 100 MG, BID
     Route: 048
  13. PHENERGAN HCL [Concomitant]
     Dosage: 25 MG, Q 3-4 HRS, PRN
     Dates: start: 20030110
  14. PLENDIL [Concomitant]
     Dosage: 5 MG, BID
  15. DEMEROL [Concomitant]
     Dosage: Q 3-4 HRS, PRN
     Dates: start: 20030110
  16. XOPENEX [Concomitant]
     Dosage: UNK
     Dates: start: 20030110
  17. OPTIMARK [Suspect]
     Indication: NUCLEAR MAGNETIC RESONANCE IMAGING BRAIN
     Dosage: UNK
     Route: 042
     Dates: start: 20030110, end: 20030110
  18. MINOXIDIL [Concomitant]
     Dosage: 20 MG, Q 8 HRS, PRN
     Route: 048
     Dates: start: 20030110
  19. VANCOMYCIN [Concomitant]
     Dosage: 1 GM, SINGLE
     Route: 042
     Dates: start: 20030110
  20. DOXAZOSIN [Concomitant]
     Indication: HYPERTENSION
     Dosage: UNK
  21. TYLENOL (CAPLET) [Concomitant]
     Dosage: 650 MG, Q 4 HRS, PRN
     Route: 048
     Dates: start: 20030110
  22. SODIUM CHLORIDE [Concomitant]
     Dosage: 9 ML, Q 3-4 HRS, PRN
     Route: 040
     Dates: start: 20030110

REACTIONS (32)
  - PNEUMONIA [None]
  - BACK PAIN [None]
  - ATRIAL FIBRILLATION [None]
  - ABDOMINAL PAIN [None]
  - LETHARGY [None]
  - CONFUSIONAL STATE [None]
  - FEELING COLD [None]
  - LEUKOCYTOSIS [None]
  - SINUS TACHYCARDIA [None]
  - ATRIOVENTRICULAR BLOCK [None]
  - RENAL CYST [None]
  - THROMBOCYTOPENIA [None]
  - GAIT DISTURBANCE [None]
  - NEPHROGENIC SYSTEMIC FIBROSIS [None]
  - SEPSIS [None]
  - TENDON DISORDER [None]
  - SPLENOMEGALY [None]
  - ELECTROCARDIOGRAM QT PROLONGED [None]
  - RESPIRATORY DISTRESS [None]
  - ARTHRALGIA [None]
  - STAPHYLOCOCCAL INFECTION [None]
  - DIARRHOEA [None]
  - PAIN [None]
  - ABDOMINAL DISTENSION [None]
  - MYOCARDIAL INFARCTION [None]
  - HYPERTENSIVE EMERGENCY [None]
  - ACANTHOSIS NIGRICANS [None]
  - CARDIAC FAILURE CONGESTIVE [None]
  - PULMONARY OEDEMA [None]
  - CHEST PAIN [None]
  - LUNG INFILTRATION [None]
  - OEDEMA PERIPHERAL [None]
